FAERS Safety Report 22077820 (Version 1)
Quarter: 2023Q1

REPORT INFORMATION
  Report Type: Spontaneous
  Country: SE (occurrence: SE)
  Receive Date: 20230309
  Receipt Date: 20230309
  Transmission Date: 20230418
  Serious: Yes (Hospitalization)
  Sender: FDA-Public Use
  Company Number: None

PATIENT
  Sex: Female

DRUGS (6)
  1. VENLAFAXINE [Suspect]
     Active Substance: VENLAFAXINE HYDROCHLORIDE
     Indication: Product used for unknown indication
     Dosage: 1 DOSAGE FORM , 1 TOTAL (OKLAR MANGD)
     Route: 048
     Dates: start: 20220303, end: 20220303
  2. METOPROLOL [Suspect]
     Active Substance: METOPROLOL
     Indication: Product used for unknown indication
     Dosage: 1 DOSAGE FORM, 1 TOTAL (OKLAR MANGD)
     Route: 048
     Dates: start: 20220303, end: 20220303
  3. AMLODIPINE [Suspect]
     Active Substance: AMLODIPINE BESYLATE
     Indication: Product used for unknown indication
     Dosage: 1 DOSAGE FORM, 1 TOTAL (OKLAR MANGD)
     Route: 048
     Dates: start: 20220303, end: 20220303
  4. LAMOTRIGINE [Suspect]
     Active Substance: LAMOTRIGINE
     Indication: Product used for unknown indication
     Dosage: 1 DOSAGE FORM, 1 TOTAL (OKLAR MANGD)
     Route: 048
     Dates: start: 20220303, end: 20220303
  5. METHYLENE BLUE [Suspect]
     Active Substance: METHYLENE BLUE
     Indication: Product used for unknown indication
     Dosage: 1 DOSAGE FORM,1 TOTAL (OKLAR MANGD)
     Route: 065
     Dates: start: 20220303, end: 20220303
  6. PROMETHAZINE HYDROCHLORIDE\THIOUREA [Suspect]
     Active Substance: PROMETHAZINE HYDROCHLORIDE\THIOUREA
     Indication: Product used for unknown indication
     Dosage: 1 DOSAGE FORM, 1 TOTAL (OKLAR MANGD)
     Route: 048
     Dates: start: 20220303, end: 20220303

REACTIONS (13)
  - Electrocardiogram QRS complex prolonged [Unknown]
  - Intentional self-injury [Unknown]
  - Cardiac failure [Unknown]
  - Cardiac arrest [Unknown]
  - Mydriasis [Unknown]
  - Vasoplegia syndrome [Unknown]
  - Serotonin syndrome [Unknown]
  - Seizure [Unknown]
  - Muscle twitching [Unknown]
  - Bradycardia [Unknown]
  - Anxiety [Unknown]
  - Blood pressure decreased [Unknown]
  - Intentional overdose [Unknown]

NARRATIVE: CASE EVENT DATE: 20220303
